FAERS Safety Report 25453081 (Version 1)
Quarter: 2025Q2

REPORT INFORMATION
  Report Type: Spontaneous
  Country: CA (occurrence: CA)
  Receive Date: 20250618
  Receipt Date: 20250618
  Transmission Date: 20250716
  Serious: Yes (Death, Hospitalization, Other)
  Sender: MERCK SHARP & DOHME LLC
  Company Number: CA-009507513-2295627

PATIENT
  Age: 74 Year
  Sex: Male
  Weight: 87 kg

DRUGS (4)
  1. PEMBROLIZUMAB [Suspect]
     Active Substance: PEMBROLIZUMAB
     Indication: Product used for unknown indication
     Route: 065
  2. ENFORTUMAB VEDOTIN [Suspect]
     Active Substance: ENFORTUMAB VEDOTIN
     Indication: Product used for unknown indication
     Route: 042
  3. ENFORTUMAB VEDOTIN [Suspect]
     Active Substance: ENFORTUMAB VEDOTIN
     Indication: Product used for unknown indication
     Route: 042
  4. ENFORTUMAB VEDOTIN [Suspect]
     Active Substance: ENFORTUMAB VEDOTIN
     Indication: Product used for unknown indication
     Route: 065

REACTIONS (4)
  - Back pain [Fatal]
  - Blood pressure increased [Fatal]
  - Toxic epidermal necrolysis [Fatal]
  - Nausea [Fatal]
